FAERS Safety Report 20837034 (Version 12)
Quarter: 2022Q4

REPORT INFORMATION
  Report Type: Report from Study
  Country: US (occurrence: US)
  Receive Date: 20220517
  Receipt Date: 20221223
  Transmission Date: 20230113
  Serious: Yes (Other)
  Sender: FDA-Public Use
  Company Number: US-NOVARTISTESTPH-NVSC2022US112171

PATIENT
  Sex: Female
  Weight: 104.31 kg

DRUGS (12)
  1. TREPROSTINIL [Suspect]
     Active Substance: TREPROSTINIL
     Indication: Pulmonary arterial hypertension
     Dosage: 15.5 NG/KG/MIN, CONT
     Route: 058
     Dates: start: 20220331
  2. TREPROSTINIL [Suspect]
     Active Substance: TREPROSTINIL
     Dosage: 15.5 NG/KG/MIN, CONT
     Route: 058
  3. TREPROSTINIL [Suspect]
     Active Substance: TREPROSTINIL
     Dosage: UNK, CONT
     Route: 058
     Dates: end: 2022
  4. ORENITRAM [Suspect]
     Active Substance: TREPROSTINIL
     Indication: Pulmonary arterial hypertension
     Dosage: 1 MG, TID
     Route: 048
     Dates: start: 20221014
  5. ORENITRAM [Suspect]
     Active Substance: TREPROSTINIL
     Dosage: 2 MG, TID
     Route: 048
  6. ORENITRAM [Suspect]
     Active Substance: TREPROSTINIL
     Dosage: 4 MG, TID
     Route: 048
  7. ORENITRAM [Suspect]
     Active Substance: TREPROSTINIL
     Dosage: 4 MG, TID
     Route: 048
  8. ORENITRAM [Suspect]
     Active Substance: TREPROSTINIL
     Dosage: UNK
     Route: 048
  9. SILDENAFIL [Suspect]
     Active Substance: SILDENAFIL
     Indication: Product used for unknown indication
     Dosage: 40 MG, TID (ABOUT 2 TO 3 WEEKS AGO)
     Route: 065
     Dates: start: 2022
  10. PILOCARPINE HYDROCHLORIDE [Suspect]
     Active Substance: PILOCARPINE HYDROCHLORIDE
     Indication: Product used for unknown indication
     Dosage: UNK
     Route: 065
  11. OPSUMIT [Concomitant]
     Active Substance: MACITENTAN
     Indication: Product used for unknown indication
     Dosage: UNK
     Route: 065
  12. REMODULIN [Concomitant]
     Active Substance: TREPROSTINIL
     Indication: Product used for unknown indication
     Dosage: UNK
     Route: 065

REACTIONS (18)
  - Pneumonia [Unknown]
  - Dyspnoea [Unknown]
  - Sinusitis [Unknown]
  - Urinary tract infection [Unknown]
  - Oedema peripheral [Unknown]
  - Rhonchi [Unknown]
  - Fungal infection [Unknown]
  - Feeling abnormal [Unknown]
  - Sinus headache [Not Recovered/Not Resolved]
  - Ear discomfort [Unknown]
  - Nasal congestion [Unknown]
  - Cold sweat [Recovered/Resolved]
  - Gastrooesophageal reflux disease [Unknown]
  - Faeces soft [Unknown]
  - Injection site hypersensitivity [Unknown]
  - Injection site pruritus [Unknown]
  - Injection site induration [Unknown]
  - Infusion site irritation [Unknown]

NARRATIVE: CASE EVENT DATE: 20220101
